FAERS Safety Report 7990584-9 (Version None)
Quarter: 2011Q4

REPORT INFORMATION
  Report Type: 
  Country: None (occurrence: None)
  Receive Date: 20111219
  Receipt Date: 20110106
  Transmission Date: 20120403
  Serious: No
  Sender: FDA-Public Use
  Company Number: US-ASTRAZENECA-2011SE00962

PATIENT
  Age: 71 Year
  Sex: Female
  Weight: 61.2 kg

DRUGS (1)
  1. CRESTOR [Suspect]
     Route: 048
     Dates: start: 20101101

REACTIONS (3)
  - BACK PAIN [None]
  - RASH [None]
  - ABDOMINAL PAIN UPPER [None]
